FAERS Safety Report 14839610 (Version 2)
Quarter: 2018Q2

REPORT INFORMATION
  Report Type: Report from Study
  Country: MX (occurrence: MX)
  Receive Date: 20180502
  Receipt Date: 20180531
  Transmission Date: 20180711
  Serious: Yes (Other)
  Sender: FDA-Public Use
  Company Number: PHHY2018MX075430

PATIENT
  Sex: Male
  Weight: 74 kg

DRUGS (5)
  1. TEGRETOL [Suspect]
     Active Substance: CARBAMAZEPINE
     Indication: TRIGEMINAL NERVE DISORDER
     Dosage: 2 TO 3 TABLETS DAILY (400 MG), QD
     Route: 048
  2. TEGRETOL [Suspect]
     Active Substance: CARBAMAZEPINE
     Dosage: 200 MG, QD
     Route: 048
  3. TEGRETOL XR [Suspect]
     Active Substance: CARBAMAZEPINE
     Indication: TRIGEMINAL NERVE DISORDER
     Dosage: 2 DF (400 MG), QD SINCE 15 YEARS TO 4 YEARS AGO
     Route: 048
  4. TEGRETOL XR [Suspect]
     Active Substance: CARBAMAZEPINE
     Indication: HEADACHE
  5. AVALIDE [Concomitant]
     Active Substance: HYDROCHLOROTHIAZIDE\IRBESARTAN
     Indication: HYPERTENSION
     Dosage: 1 DF (HYDROCHLOROTHIAZIDE 12.5, IRBESARTAN 300) (UNIT WAS NOT PROVIDED), QD SINCE MANY YEARS
     Route: 048

REACTIONS (6)
  - Disturbance in attention [Recovered/Resolved]
  - Dizziness [Recovered/Resolved]
  - Pain [Recovered/Resolved]
  - Glaucoma [Unknown]
  - Ocular discomfort [Unknown]
  - Headache [Unknown]
